FAERS Safety Report 14593434 (Version 1)
Quarter: 2018Q1

REPORT INFORMATION
  Report Type: Spontaneous
  Country: FR (occurrence: FR)
  Receive Date: 20180302
  Receipt Date: 20180302
  Transmission Date: 20180509
  Serious: Yes (Hospitalization)
  Sender: FDA-Public Use
  Company Number: FR-PFIZER INC-2018081865

PATIENT
  Age: 62 Year
  Sex: Male

DRUGS (4)
  1. NEORAL [Concomitant]
     Active Substance: CYCLOSPORINE
     Dosage: UNK
     Dates: start: 1999
  2. NEORAL [Concomitant]
     Active Substance: CYCLOSPORINE
     Dosage: UNK
     Dates: start: 20180215
  3. AMLOR [Suspect]
     Active Substance: AMLODIPINE BESYLATE
     Dosage: UNK
     Dates: start: 201801
  4. IPERTEN [Suspect]
     Active Substance: MANIDIPINE
     Dosage: UNK

REACTIONS (9)
  - Contraindicated product administered [Unknown]
  - Cardiac disorder [Unknown]
  - Cough [Unknown]
  - Dyspnoea [Unknown]
  - Dry mouth [Unknown]
  - Joint swelling [Unknown]
  - Abdominal distension [Unknown]
  - Pruritus [Unknown]
  - Fatigue [Unknown]
